FAERS Safety Report 9159321 (Version 2)
Quarter: 2013Q2

REPORT INFORMATION
  Report Type: Spontaneous
  Country: FR (occurrence: FR)
  Receive Date: 20130313
  Receipt Date: 20130422
  Transmission Date: 20140414
  Serious: Yes (Hospitalization)
  Sender: FDA-Public Use
  Company Number: FR-JNJFOC-20130304897

PATIENT
  Age: 42 Year
  Sex: Female

DRUGS (1)
  1. CAELYX [Suspect]
     Indication: PRODUCT USED FOR UNKNOWN INDICATION
     Dosage: 57 MG, 3 COURSES
     Route: 042
     Dates: start: 20121128, end: 20130110

REACTIONS (2)
  - Skin toxicity [Not Recovered/Not Resolved]
  - Mucocutaneous rash [Recovered/Resolved]
